FAERS Safety Report 23844155 (Version 1)
Quarter: 2024Q2

REPORT INFORMATION
  Report Type: Spontaneous
  Country: ZA (occurrence: None)
  Receive Date: 20240510
  Receipt Date: 20240510
  Transmission Date: 20240716
  Serious: Yes (Hospitalization)
  Sender: FDA-Public Use
  Company Number: 2024A106195

PATIENT
  Age: 17532 Day
  Sex: Male

DRUGS (9)
  1. BUDESONIDE\FORMOTEROL [Suspect]
     Active Substance: BUDESONIDE\FORMOTEROL
     Indication: Asthma
     Dosage: 160 UG, UNKNOWN UNKNOWN
     Route: 055
  2. WARFARIN [Concomitant]
     Active Substance: WARFARIN
     Indication: Blood test
  3. AMLOC [Concomitant]
     Indication: Hypertension
  4. MONTELUKAST SODIUM [Concomitant]
     Active Substance: MONTELUKAST SODIUM
     Indication: Asthma
  5. ZOLPIDEM TARTRATE [Concomitant]
     Active Substance: ZOLPIDEM TARTRATE
     Indication: Insomnia
  6. PERINDOPRIL [Concomitant]
     Active Substance: PERINDOPRIL
     Indication: Hypertension
  7. FLUTICASONE PROPIONATE [Concomitant]
     Active Substance: FLUTICASONE PROPIONATE
     Indication: Hypersensitivity
     Route: 045
  8. NEUCON [Concomitant]
     Indication: Attention deficit hyperactivity disorder
  9. SAXENDA PRE-FILLED [Concomitant]
     Indication: Diabetes mellitus
     Route: 058

REACTIONS (2)
  - Pulmonary thrombosis [Unknown]
  - COVID-19 [Unknown]
